FAERS Safety Report 7292827-6 (Version None)
Quarter: 2011Q1

REPORT INFORMATION
  Report Type: 
  Country: None (occurrence: None)
  Receive Date: 20110209
  Receipt Date: 20110209
  Transmission Date: 20110831
  Serious: Yes (Hospitalization, Disabling, Other)
  Sender: FDA-Public Use
  Company Number: None

PATIENT
  Age: 83 Year
  Sex: Female
  Weight: 56.6996 kg

DRUGS (1)
  1. LISINOPRIL AND HYDROCHLOROTHIAZIDE [Suspect]
     Indication: CARDIAC DISORDER
     Dosage: 20-25MG DAILY PO
     Route: 048
     Dates: start: 20100615, end: 20100730

REACTIONS (14)
  - PAIN [None]
  - BALANCE DISORDER [None]
  - CONFUSIONAL STATE [None]
  - DISORIENTATION [None]
  - RIB FRACTURE [None]
  - PARANOIA [None]
  - IRRITABILITY [None]
  - PNEUMONIA [None]
  - ANAEMIA [None]
  - AGITATION [None]
  - NAUSEA [None]
  - HALLUCINATION [None]
  - DYSARTHRIA [None]
  - MENTAL DISORDER [None]
